FAERS Safety Report 6866476-5 (Version None)
Quarter: 2010Q3

REPORT INFORMATION
  Report Type: 
  Country: None (occurrence: None)
  Receive Date: 20100722
  Receipt Date: 20100713
  Transmission Date: 20110219
  Serious: Yes (Other)
  Sender: FDA-Public Use
  Company Number: US-ASTRAZENECA-2010SE32773

PATIENT
  Age: 69 Year

DRUGS (1)
  1. SEROQUEL [Suspect]
     Route: 048

REACTIONS (7)
  - CARDIOMEGALY [None]
  - DEMENTIA [None]
  - HYPERTENSION [None]
  - PULMONARY CONGESTION [None]
  - PYURIA [None]
  - RENAL FAILURE CHRONIC [None]
  - TARDIVE DYSKINESIA [None]
